FAERS Safety Report 11655912 (Version 2)
Quarter: 2020Q3

REPORT INFORMATION
  Report Type: Spontaneous
  Country: US (occurrence: US)
  Receive Date: 20151023
  Receipt Date: 20200811
  Transmission Date: 20201102
  Serious: Yes (Life-Threatening, Hospitalization, Other)
  Sender: FDA-Public Use
  Company Number: US-IPCA LABORATORIES LIMITED-IPC201510-000687

PATIENT

DRUGS (2)
  1. METOPROLOL TARTRATE TABLETS [Suspect]
     Active Substance: METOPROLOL TARTRATE
     Indication: PRODUCT USED FOR UNKNOWN INDICATION
     Dosage: 25 MILLIGRAM, SINGLE
     Route: 048
  2. AMLODIPINE [Suspect]
     Active Substance: AMLODIPINE BESYLATE
     Indication: PRODUCT USED FOR UNKNOWN INDICATION
     Dosage: 5 MILLIGRAM, SINGLE
     Route: 048

REACTIONS (7)
  - Vomiting [Recovered/Resolved]
  - Nodal arrhythmia [Recovered/Resolved]
  - Intentional overdose [Unknown]
  - Condition aggravated [Recovered/Resolved]
  - Suicide attempt [Unknown]
  - Hypotension [Recovering/Resolving]
  - Somnolence [Recovered/Resolved]
